FAERS Safety Report 8825857 (Version 6)
Quarter: 2013Q4

REPORT INFORMATION
  Report Type: Spontaneous
  Country: US (occurrence: US)
  Receive Date: 20121004
  Receipt Date: 20131219
  Transmission Date: 20140711
  Serious: Yes (Hospitalization, Disabling, Other)
  Sender: FDA-Public Use
  Company Number: US-009507513-1210USA002362

PATIENT
  Sex: Female
  Weight: 61.22 kg

DRUGS (2)
  1. NUVARING [Suspect]
     Indication: CONTRACEPTION
     Dosage: UNK
     Route: 067
     Dates: start: 200801, end: 200910
  2. NUVARING [Suspect]
     Dosage: UNK
     Route: 067
     Dates: start: 2005, end: 2007

REACTIONS (14)
  - Deep vein thrombosis [Unknown]
  - Pulmonary embolism [Unknown]
  - Palpitations [Recovering/Resolving]
  - Adverse drug reaction [Unknown]
  - Premenstrual syndrome [Unknown]
  - Blood urine [Unknown]
  - Rhinoplasty [Unknown]
  - Pain in extremity [Unknown]
  - Muscle spasms [Recovered/Resolved]
  - Muscle strain [Recovered/Resolved]
  - Wisdom teeth removal [Unknown]
  - Nausea [Unknown]
  - Vomiting [Unknown]
  - Diarrhoea [Unknown]
